FAERS Safety Report 18493932 (Version 2)
Quarter: 2020Q4

REPORT INFORMATION
  Report Type: Report from Study
  Country: BR (occurrence: BR)
  Receive Date: 20201111
  Receipt Date: 20201123
  Transmission Date: 20210114
  Serious: Yes (Hospitalization)
  Sender: FDA-Public Use
  Company Number: BR-BIOGEN-2020BI00936146

PATIENT
  Age: 50 Year
  Sex: Female

DRUGS (10)
  1. TECFIDERA [Suspect]
     Active Substance: DIMETHYL FUMARATE
     Indication: MULTIPLE SCLEROSIS
     Dosage: STARTING DOSE
     Route: 048
     Dates: start: 20190801, end: 20190808
  2. VITAMIN D [Concomitant]
     Active Substance: VITAMIN D NOS
     Indication: VITAMIN D DEFICIENCY
     Route: 065
  3. SELENIUM [Concomitant]
     Active Substance: SELENIUM
     Indication: PRODUCT USED FOR UNKNOWN INDICATION
     Route: 065
  4. TECFIDERA [Suspect]
     Active Substance: DIMETHYL FUMARATE
     Dosage: MAINTENANCE DOSE
     Route: 048
     Dates: start: 20190801
  5. ESCITALOPRAM OXALATE. [Concomitant]
     Active Substance: ESCITALOPRAM OXALATE
     Indication: SLEEP DISORDER
     Route: 065
  6. PACO [Concomitant]
     Active Substance: ACETAMINOPHEN\CODEINE PHOSPHATE
     Indication: ARTHRALGIA
     Route: 065
  7. ZINC. [Concomitant]
     Active Substance: ZINC
     Indication: PRODUCT USED FOR UNKNOWN INDICATION
     Route: 065
  8. BACLOFEN. [Suspect]
     Active Substance: BACLOFEN
     Indication: CHEST PAIN
     Route: 065
  9. TECFIDERA [Suspect]
     Active Substance: DIMETHYL FUMARATE
     Dosage: MAINTENANCE DOSE
     Route: 048
     Dates: start: 20190809
  10. NOVALGINA (DIPYRONE) [Suspect]
     Active Substance: DIPYRONE
     Indication: CHEST PAIN
     Route: 065

REACTIONS (25)
  - Skin irritation [Recovered/Resolved]
  - Tongue exfoliation [Unknown]
  - Flushing [Recovered/Resolved]
  - Anal incontinence [Unknown]
  - Decreased appetite [Unknown]
  - Mobility decreased [Unknown]
  - Herpes virus infection [Unknown]
  - Urinary incontinence [Unknown]
  - Decreased immune responsiveness [Not Recovered/Not Resolved]
  - Musculoskeletal stiffness [Unknown]
  - Pyrexia [Recovered/Resolved]
  - Multiple sclerosis relapse [Not Recovered/Not Resolved]
  - Arthralgia [Not Recovered/Not Resolved]
  - Treatment failure [Not Recovered/Not Resolved]
  - Asthenia [Unknown]
  - Muscle spasms [Not Recovered/Not Resolved]
  - Oral herpes [Recovered/Resolved]
  - Chest pain [Recovered/Resolved]
  - Gastric disorder [Unknown]
  - Sensory disturbance [Unknown]
  - Candida infection [Not Recovered/Not Resolved]
  - Muscle spasms [Recovered/Resolved]
  - Feeling hot [Recovered/Resolved]
  - Swollen tongue [Unknown]
  - Chest pain [Unknown]

NARRATIVE: CASE EVENT DATE: 201908
